FAERS Safety Report 25850649 (Version 1)
Quarter: 2025Q3

REPORT INFORMATION
  Report Type: Spontaneous
  Country: CA (occurrence: CA)
  Receive Date: 20250926
  Receipt Date: 20250926
  Transmission Date: 20251021
  Serious: Yes (Other)
  Sender: ACCORD
  Company Number: None

PATIENT
  Age: 52 Year
  Sex: Female

DRUGS (8)
  1. METHOTREXATE [Suspect]
     Active Substance: METHOTREXATE
     Indication: Rheumatoid arthritis
     Route: 065
  2. CIALIS [Concomitant]
     Active Substance: TADALAFIL
  3. HYDROXYCHLOROQUINE [Concomitant]
     Active Substance: HYDROXYCHLOROQUINE
  4. MYCOPHENOLATE MOFETIL [Concomitant]
     Active Substance: MYCOPHENOLATE MOFETIL
  5. NAPROXEN [Concomitant]
     Active Substance: NAPROXEN
  6. NIFEDIPINE [Concomitant]
     Active Substance: NIFEDIPINE
  7. PENTOXIFYLLINE [Concomitant]
     Active Substance: PENTOXIFYLLINE
  8. PREDNISONE [Concomitant]
     Active Substance: PREDNISONE

REACTIONS (3)
  - Mouth ulceration [Not Recovered/Not Resolved]
  - Neutropenia [Not Recovered/Not Resolved]
  - Nausea [Not Recovered/Not Resolved]
